FAERS Safety Report 4737810-7 (Version None)
Quarter: 2005Q3

REPORT INFORMATION
  Report Type: 
  Country: None (occurrence: None)
  Receive Date: 20050802
  Receipt Date: 20050721
  Transmission Date: 20060218
  Serious: Yes (Hospitalization)
  Sender: FDA-Public Use
  Company Number: 2005-0008567

PATIENT
  Age: 72 Year
  Sex: Male

DRUGS (12)
  1. VIREAD [Suspect]
     Indication: HIV INFECTION
     Dosage: 300 MG, 1 IN 1 D, ORAL
     Route: 048
     Dates: start: 20040708, end: 20040812
  2. VIREAD [Suspect]
     Indication: HIV INFECTION
     Dosage: 300 MG, 1 IN 1 D, ORAL
     Route: 048
     Dates: start: 20041206
  3. EFAVIRENZ [Suspect]
     Indication: HIV INFECTION
     Dosage: 600 MG, 1 IN 1 D; ORAL
     Route: 048
     Dates: start: 20040304, end: 20040614
  4. EFAVIRENZ [Suspect]
     Indication: HIV INFECTION
     Dosage: 600 MG, 1 IN 1 D; ORAL
     Route: 048
     Dates: start: 20040708, end: 20040812
  5. EPIVIR [Suspect]
     Indication: HIV INFECTION
     Dosage: 300 MG, 1 IN 1 D, ORAL
     Route: 048
     Dates: start: 20040417, end: 20040614
  6. EPIVIR [Suspect]
     Indication: HIV INFECTION
     Dosage: 300 MG, 1 IN 1 D, ORAL
     Route: 048
     Dates: start: 20040708, end: 20040812
  7. COMBIVIR [Suspect]
     Indication: HIV INFECTION
     Dosage: 2 DOSAGE FORMS, 1 IN 1 D; ORAL
     Route: 048
     Dates: start: 20040304, end: 20040416
  8. ZERIT [Suspect]
     Indication: HIV INFECTION
     Dosage: 60 MG, 1 IN 1 D; ORAL
     Route: 048
     Dates: start: 20040417, end: 20040420
  9. ZIAGEN [Suspect]
     Indication: HIV INFECTION
     Dosage: 600 MG, 1 IN 1 D; ORAL
     Route: 048
     Dates: start: 20040421, end: 20040614
  10. LOXONIN (LOXOPROFEN SODIUM) [Concomitant]
  11. LENDORMIN (BRITIZOLAM) [Concomitant]
  12. AMOBAN (ZOPICLONE) [Concomitant]

REACTIONS (1)
  - HYPOAESTHESIA [None]
